FAERS Safety Report 9670966 (Version 1)
Quarter: 2013Q4

REPORT INFORMATION
  Report Type: Spontaneous
  Country: FR (occurrence: FR)
  Receive Date: 20131106
  Receipt Date: 20131106
  Transmission Date: 20140711
  Serious: Yes (Other)
  Sender: FDA-Public Use
  Company Number: FR-JNJFOC-20131003845

PATIENT
  Sex: 0

DRUGS (1)
  1. KETOCONAZOLE [Suspect]
     Indication: PITUITARY-DEPENDENT CUSHING^S SYNDROME
     Route: 065

REACTIONS (18)
  - Adrenal insufficiency [Unknown]
  - Dyspnoea [Unknown]
  - Vertigo [Unknown]
  - Renal failure [Unknown]
  - Leukopenia [Unknown]
  - Hypertriglyceridaemia [Unknown]
  - Oedema peripheral [Unknown]
  - Gastrointestinal disorder [Unknown]
  - Pruritus [Unknown]
  - Alopecia [Unknown]
  - Asthenia [Unknown]
  - Hepatocellular injury [Unknown]
  - Neutropenia [Unknown]
  - Myalgia [Unknown]
  - Drug ineffective [Unknown]
  - Therapeutic response decreased [Unknown]
  - Refusal of treatment by patient [Unknown]
  - Off label use [Unknown]
